FAERS Safety Report 11073802 (Version 2)
Quarter: 2015Q2

REPORT INFORMATION
  Report Type: Other
  Country: FR (occurrence: FR)
  Receive Date: 20150428
  Receipt Date: 20150515
  Transmission Date: 20150821
  Serious: Yes (Life-Threatening, Hospitalization)
  Sender: FDA-Public Use
  Company Number: FR-SPECTRUM PHARMACEUTICALS, INC.-15-Z-FR-00165

PATIENT
  Age: 57 Year
  Sex: Female
  Weight: 63 kg

DRUGS (9)
  1. MELPHALAN [Suspect]
     Active Substance: MELPHALAN
     Indication: NON-HODGKIN^S LYMPHOMA
     Dosage: 140 MG/M2, SINGLE, DAY -2
     Dates: start: 20141202, end: 20141202
  2. EMEND [Concomitant]
     Active Substance: APREPITANT
     Indication: NON-HODGKIN^S LYMPHOMA
     Dosage: UNK, UNKNOWN
     Route: 065
  3. ETOPOSIDE TEVA [Suspect]
     Active Substance: ETOPOSIDE
     Indication: NON-HODGKIN^S LYMPHOMA
     Dosage: 100 MG/M2, BID, DAY -6 TO DAY-3
     Route: 065
     Dates: start: 20141128, end: 20141201
  4. CYTARABINE. [Suspect]
     Active Substance: CYTARABINE
     Indication: NON-HODGKIN^S LYMPHOMA
     Dosage: 200 MG/M2, BID, DAY -6 TO DAY -3
     Route: 065
     Dates: start: 20141128, end: 20141201
  5. GRANISETRON [Suspect]
     Active Substance: GRANISETRON
     Indication: NON-HODGKIN^S LYMPHOMA
     Dosage: UNK, UNKNOWN
     Route: 065
  6. CARMUSTINE [Suspect]
     Active Substance: CARMUSTINE
     Indication: NON-HODGKIN^S LYMPHOMA
     Dosage: 300 MG/M2, SINGLE, DAY -6
     Route: 065
     Dates: start: 20141128, end: 20141128
  7. ZEVALIN [Suspect]
     Active Substance: IBRITUMOMAB TIUXETAN
     Indication: NON-HODGKIN^S LYMPHOMA
     Dosage: UNK, SINGLE, DAY -14
     Route: 042
     Dates: start: 20141120, end: 20141120
  8. SOLU-MEDROL [Concomitant]
     Active Substance: METHYLPREDNISOLONE SODIUM SUCCINATE
     Indication: NON-HODGKIN^S LYMPHOMA
     Dosage: UNK, UNKNOWN
     Route: 065
  9. ZEVALIN [Suspect]
     Active Substance: IBRITUMOMAB TIUXETAN
     Dosage: UNK, SINGLE, DAY -21
     Route: 042
     Dates: start: 20141113, end: 20141113

REACTIONS (9)
  - Febrile bone marrow aplasia [Recovered/Resolved]
  - Vomiting [Recovered/Resolved]
  - Diarrhoea [Recovered/Resolved]
  - Nausea [Recovered/Resolved]
  - Generalised oedema [Recovered/Resolved]
  - Transaminases increased [Recovered/Resolved]
  - Venoocclusive disease [Unknown]
  - Stomatitis [Recovered/Resolved]
  - Cholestasis [Recovered/Resolved]

NARRATIVE: CASE EVENT DATE: 20141206
